FAERS Safety Report 6598970-9 (Version None)
Quarter: 2010Q1

REPORT INFORMATION
  Report Type: 
  Country: None (occurrence: None)
  Receive Date: 20100224
  Receipt Date: 20090501
  Transmission Date: 20100710
  Serious: No
  Sender: FDA-Public Use
  Company Number: US-BRISTOL-MYERS SQUIBB COMPANY-14609093

PATIENT
  Age: 64 Year
  Sex: Female

DRUGS (5)
  1. METFORMIN HCL [Suspect]
     Route: 048
  2. DEXAMETHASONE [Concomitant]
  3. MORPHINE [Concomitant]
     Indication: PAIN
     Dosage: MORPHINE ER, PRN
  4. ELAVIL [Concomitant]
     Dosage: NIGHTLY
     Route: 048
  5. VITAMIN B-12 [Concomitant]

REACTIONS (1)
  - HEADACHE [None]
